FAERS Safety Report 23119825 (Version 1)
Quarter: 2023Q4

REPORT INFORMATION
  Report Type: Spontaneous
  Country: US (occurrence: None)
  Receive Date: 20231029
  Receipt Date: 20231029
  Transmission Date: 20240109
  Serious: Yes (Death, Other)
  Sender: FDA-Public Use
  Company Number: US-ENDO-CASE-0036356

PATIENT
  Sex: Male

DRUGS (2)
  1. TRAMADOL HYDROCHLORIDE [Suspect]
     Active Substance: TRAMADOL HYDROCHLORIDE
  2. OPANA [Suspect]
     Active Substance: OXYMORPHONE HYDROCHLORIDE

REACTIONS (10)
  - Dependence [Unknown]
  - Dysphagia [Unknown]
  - Gastrointestinal disorder [Unknown]
  - Asthma [Unknown]
  - Foetal exposure during pregnancy [Unknown]
  - Death [Fatal]
  - Talipes [Unknown]
  - Cardiac disorder [Unknown]
  - Premature baby [Unknown]
  - Drug withdrawal syndrome neonatal [Unknown]
